FAERS Safety Report 7677488-6 (Version None)
Quarter: 2011Q3

REPORT INFORMATION
  Report Type: 
  Country: None (occurrence: None)
  Receive Date: 20110810
  Receipt Date: 20110810
  Transmission Date: 20111222
  Serious: No
  Sender: FDA-Public Use
  Company Number: None

PATIENT
  Sex: Male
  Weight: 110 kg

DRUGS (11)
  1. PREDNISONE [Concomitant]
  2. OXYCODONE HCL [Concomitant]
  3. FLONASE [Concomitant]
  4. LORAZEPAM [Concomitant]
  5. ADVAIR DISKUS 100/50 [Concomitant]
  6. RITALIN [Concomitant]
  7. IBUPROFEN [Concomitant]
  8. MORPHINE [Concomitant]
  9. PRIVIGEN [Suspect]
     Dosage: 60 GRAMS Q 4 WEEKS IV
     Route: 042
     Dates: start: 20110125
  10. VENTOLIN HFA [Concomitant]
  11. CLOZAPINE [Concomitant]

REACTIONS (1)
  - RASH PAPULAR [None]
